FAERS Safety Report 6124357-9 (Version None)
Quarter: 2009Q1

REPORT INFORMATION
  Report Type: 
  Country: None (occurrence: None)
  Receive Date: 20090319
  Receipt Date: 20090309
  Transmission Date: 20090719
  Serious: Yes (Hospitalization)
  Sender: FDA-Public Use
  Company Number: IL-AVENTIS-200912334GDDC

PATIENT
  Age: 27 Year
  Sex: Female

DRUGS (2)
  1. CLOMIFENE [Suspect]
     Dosage: DOSE: 50-150
  2. CLOMIFENE [Suspect]

REACTIONS (6)
  - ABDOMINAL PAIN [None]
  - NAUSEA [None]
  - OVERDOSE [None]
  - PANCREATITIS ACUTE [None]
  - PYREXIA [None]
  - VOMITING [None]
